FAERS Safety Report 26168191 (Version 1)
Quarter: 2025Q4

REPORT INFORMATION
  Report Type: Spontaneous
  Country: US (occurrence: US)
  Receive Date: 20251217
  Receipt Date: 20251217
  Transmission Date: 20260118
  Serious: No
  Sender: PACIRA
  Company Number: US-ORG100016242-2025000065

PATIENT
  Weight: 85 kg

DRUGS (4)
  1. EXPAREL [Suspect]
     Active Substance: BUPIVACAINE
     Indication: Product used for unknown indication
     Route: 050
  2. MARCAINE [Suspect]
     Active Substance: BUPIVACAINE HYDROCHLORIDE
     Indication: Product used for unknown indication
     Route: 050
  3. EPINEPHRINE [Suspect]
     Active Substance: EPINEPHRINE
     Indication: Product used for unknown indication
     Dosage: TOTAL VOLUME OF 54ML
     Route: 050
  4. LIDOCAINE [Suspect]
     Active Substance: LIDOCAINE
     Indication: Product used for unknown indication
     Dosage: TOTAL VOLUME OF 54ML
     Route: 050

REACTIONS (2)
  - No adverse event [Unknown]
  - Labelled drug-drug interaction medication error [Unknown]
